FAERS Safety Report 4861644-6 (Version None)
Quarter: 2005Q4

REPORT INFORMATION
  Report Type: 
  Country: None (occurrence: None)
  Receive Date: 20051130
  Receipt Date: 20050316
  Transmission Date: 20060501
  Serious: Yes (Disabling, Other)
  Sender: FDA-Public Use
  Company Number: 200510410BWH

PATIENT
  Age: 65 Year
  Sex: Male

DRUGS (7)
  1. CIPRO [Suspect]
     Indication: URINARY TRACT INFECTION
     Dosage: 500 MG, BID, ORAL
     Route: 048
     Dates: start: 19991030, end: 19991108
  2. CIPROFLOXACIN [Suspect]
     Indication: URINARY TRACT INFECTION
     Dosage: 500 MG, BID, ORAL
     Route: 048
     Dates: start: 20040401, end: 20040414
  3. DIGITEK [Concomitant]
  4. DEPO-TESTOSTERONE [Concomitant]
  5. ASPIRIN [Concomitant]
  6. LEVOTHROID [Concomitant]
  7. CORTISONE ACETATE TAB [Concomitant]

REACTIONS (4)
  - ASTHENIA [None]
  - MYALGIA [None]
  - PAIN IN EXTREMITY [None]
  - TENDON RUPTURE [None]
